FAERS Safety Report 22165542 (Version 1)
Quarter: 2023Q1

REPORT INFORMATION
  Report Type: Spontaneous
  Country: US (occurrence: None)
  Receive Date: 20230331
  Receipt Date: 20230331
  Transmission Date: 20230417
  Serious: No
  Sender: FDA-Public Use
  Company Number: None

PATIENT
  Age: 78 Year
  Sex: Male
  Weight: 75.57 kg

DRUGS (11)
  1. ABIRATERONE ACETATE [Suspect]
     Active Substance: ABIRATERONE ACETATE
     Indication: Prostate cancer
     Dosage: FREQUENCY : DAILY;?
     Route: 048
     Dates: end: 20230311
  2. BISACODYL [Concomitant]
     Active Substance: BISACODYL
  3. DIETARY SUPPLEMENT [Concomitant]
     Active Substance: DIETARY SUPPLEMENT
  4. SENNA [Concomitant]
     Active Substance: SENNA LEAF\SENNOSIDES\SENNOSIDES A AND B
  5. Daily Multiple Vitamins [Concomitant]
  6. HYDROMORPHONE [Concomitant]
     Active Substance: HYDROMORPHONE
  7. LISINOPRIL [Concomitant]
     Active Substance: LISINOPRIL
  8. POLYETHYLENE GLYCOL [Concomitant]
     Active Substance: POLYETHYLENE GLYCOL
  9. PREDNISONE [Concomitant]
     Active Substance: PREDNISONE
  10. ZOFRAN [Concomitant]
     Active Substance: ONDANSETRON HYDROCHLORIDE
  11. ZOLADEX [Concomitant]
     Active Substance: GOSERELIN ACETATE

REACTIONS (4)
  - Pulmonary oedema [None]
  - Cardiac failure congestive [None]
  - Chronic kidney disease [None]
  - Therapy cessation [None]
